FAERS Safety Report 15891171 (Version 1)
Quarter: 2019Q1

REPORT INFORMATION
  Report Type: Spontaneous
  Country: SE (occurrence: SE)
  Receive Date: 20190130
  Receipt Date: 20190130
  Transmission Date: 20190417
  Serious: Yes (Disabling)
  Sender: FDA-Public Use
  Company Number: SE-MYLANLABS-2019M1008455

PATIENT
  Sex: Male
  Weight: 85 kg

DRUGS (9)
  1. NEBIDO [Concomitant]
     Active Substance: TESTOSTERONE UNDECANOATE
  2. LOSARTAN. [Suspect]
     Active Substance: LOSARTAN
     Indication: HYPERTENSION
     Dosage: 1X50 MG MORGON O KV?LL
  3. CYMBALTA [Concomitant]
     Active Substance: DULOXETINE HYDROCHLORIDE
  4. OMEPRAZOLE. [Concomitant]
     Active Substance: OMEPRAZOLE
  5. BEVIPLEX FORTE [Concomitant]
  6. PREDNISOLON PFIZER [Concomitant]
     Active Substance: PREDNISOLONE
  7. XARELTO [Concomitant]
     Active Substance: RIVAROXABAN
  8. TRAMADOL. [Concomitant]
     Active Substance: TRAMADOL
  9. CALCICHEW D3 CITRON                /00944201/ [Concomitant]

REACTIONS (3)
  - Skin odour abnormal [Not Recovered/Not Resolved]
  - Abnormal faeces [Not Recovered/Not Resolved]
  - Urine odour abnormal [Not Recovered/Not Resolved]
